FAERS Safety Report 14466174 (Version 1)
Quarter: 2018Q1

REPORT INFORMATION
  Report Type: Report from Study
  Country: IN (occurrence: IN)
  Receive Date: 20180131
  Receipt Date: 20180131
  Transmission Date: 20180509
  Serious: Yes (Other)
  Sender: FDA-Public Use
  Company Number: IN-ROCHE-2059539

PATIENT
  Age: 49 Year
  Sex: Female

DRUGS (1)
  1. AVASTIN [Suspect]
     Active Substance: BEVACIZUMAB
     Indication: OVARIAN CANCER
     Route: 040
     Dates: start: 20171214, end: 20171214

REACTIONS (5)
  - Anal haemorrhage [Unknown]
  - Haematuria [Unknown]
  - Blood urine present [Unknown]
  - Epistaxis [Unknown]
  - Hypersensitivity [Unknown]
